FAERS Safety Report 21027624 (Version 1)
Quarter: 2022Q2

REPORT INFORMATION
  Report Type: Spontaneous
  Country: GB (occurrence: GB)
  Receive Date: 20220630
  Receipt Date: 20220630
  Transmission Date: 20220721
  Serious: Yes (Other)
  Sender: FDA-Public Use
  Company Number: GB-MHRA-MED-202206281208480040-YHGJZ

PATIENT
  Age: 75 Year
  Sex: Female

DRUGS (16)
  1. ATORVASTATIN [Suspect]
     Active Substance: ATORVASTATIN
     Dosage: 20 MG, 1X/DAY
     Dates: start: 20220520, end: 20220622
  2. DOXYCYCLINE [Suspect]
     Active Substance: DOXYCYCLINE
     Indication: Adverse drug reaction
     Dosage: 100MG OD; ;
     Dates: start: 20220610, end: 20220612
  3. BUMETANIDE [Suspect]
     Active Substance: BUMETANIDE
     Dosage: 1 MG, DAILY
     Dates: start: 20220610
  4. BUMETANIDE [Suspect]
     Active Substance: BUMETANIDE
     Dosage: 1 MG, ALTERNATE DAY (REDUCED DOSE)
  5. PREDNISOLONE [Suspect]
     Active Substance: PREDNISOLONE
     Indication: Adverse drug reaction
     Dosage: UNK
     Dates: start: 20220610, end: 20220614
  6. CALCIUM CARBONATE\CHOLECALCIFEROL [Concomitant]
     Active Substance: CALCIUM CARBONATE\CHOLECALCIFEROL
  7. AMLODIPINE [Concomitant]
     Active Substance: AMLODIPINE BESYLATE
  8. CLOPIDOGREL [Concomitant]
     Active Substance: CLOPIDOGREL BISULFATE
  9. DOXAZOSIN [Concomitant]
     Active Substance: DOXAZOSIN MESYLATE
  10. DULOXETINE [Concomitant]
     Active Substance: DULOXETINE
  11. ENTRESTO [Concomitant]
     Active Substance: SACUBITRIL\VALSARTAN
  12. IVABRADINE [Concomitant]
     Active Substance: IVABRADINE
  13. LANSOPRAZOLE [Concomitant]
     Active Substance: LANSOPRAZOLE
  14. LINAGLIPTIN [Concomitant]
     Active Substance: LINAGLIPTIN
  15. MEBEVERINE [Concomitant]
     Active Substance: MEBEVERINE
  16. SPIRONOLACTONE [Concomitant]
     Active Substance: SPIRONOLACTONE

REACTIONS (2)
  - Rash [Recovering/Resolving]
  - Blister [Recovering/Resolving]

NARRATIVE: CASE EVENT DATE: 20220610
